FAERS Safety Report 9233205 (Version 1)
Quarter: 2013Q2

REPORT INFORMATION
  Report Type: Spontaneous
  Country: US (occurrence: US)
  Receive Date: 20130416
  Receipt Date: 20130416
  Transmission Date: 20140414
  Serious: No
  Sender: FDA-Public Use
  Company Number: US-BAYER-2013-045553

PATIENT
  Age: 47 Year
  Sex: Female

DRUGS (2)
  1. MIRENA [Suspect]
     Indication: CONTRACEPTION
     Dosage: 20 MCG/24HR, CONT
     Route: 015
     Dates: start: 20130408
  2. MIRENA [Suspect]
     Indication: MENORRHAGIA

REACTIONS (3)
  - Abdominal pain lower [Recovering/Resolving]
  - Pain [None]
  - Vulvovaginal pain [None]
